FAERS Safety Report 21267992 (Version 1)
Quarter: 2022Q3

REPORT INFORMATION
  Report Type: Spontaneous
  Country: DE (occurrence: DE)
  Receive Date: 20220829
  Receipt Date: 20220829
  Transmission Date: 20221027
  Serious: Yes (Other)
  Sender: FDA-Public Use
  Company Number: DE-GILEAD-2022-0594981

PATIENT
  Age: 63 Year
  Sex: Female

DRUGS (4)
  1. REMDESIVIR [Suspect]
     Active Substance: REMDESIVIR
     Indication: COVID-19
     Dosage: UNK
     Route: 065
     Dates: start: 202202
  2. DEXAMETHASONE [Concomitant]
     Active Substance: DEXAMETHASONE
  3. SOTROVIMAB [Concomitant]
     Active Substance: SOTROVIMAB
     Dosage: ONCE
  4. OXYGEN [Concomitant]
     Active Substance: OXYGEN

REACTIONS (1)
  - Oxygen consumption increased [Unknown]

NARRATIVE: CASE EVENT DATE: 20220201
